FAERS Safety Report 12850200 (Version 1)
Quarter: 2016Q4

REPORT INFORMATION
  Report Type: Report from Study
  Country: US (occurrence: US)
  Receive Date: 20161014
  Receipt Date: 20161014
  Transmission Date: 20170207
  Serious: Yes (Other)
  Sender: FDA-Public Use
  Company Number: US-MALLINCKRODT-T201605005

PATIENT
  Age: 20 Year
  Sex: Male
  Weight: 84 kg

DRUGS (3)
  1. REPOSITORY CORTICOTROPIN INJECTION [Suspect]
     Active Substance: CORTICOTROPIN
     Indication: IGA NEPHROPATHY
     Dosage: 80U/1ML, 2X/WK (WED + SAT)
     Route: 058
     Dates: start: 20160622
  2. ARANESP [Concomitant]
     Active Substance: DARBEPOETIN ALFA
     Dosage: UNK
     Dates: start: 201608
  3. TORSEMIDE. [Concomitant]
     Active Substance: TORSEMIDE
     Dosage: 30 MG, UNK

REACTIONS (6)
  - Pollakiuria [Unknown]
  - Blood albumin decreased [Unknown]
  - Therapeutic response unexpected [Not Recovered/Not Resolved]
  - Haemoglobin decreased [Not Recovered/Not Resolved]
  - Fluid retention [Not Recovered/Not Resolved]
  - Blood creatinine decreased [Not Recovered/Not Resolved]

NARRATIVE: CASE EVENT DATE: 2016
